FAERS Safety Report 14573065 (Version 3)
Quarter: 2019Q1

REPORT INFORMATION
  Report Type: Spontaneous
  Country: US (occurrence: US)
  Receive Date: 20180226
  Receipt Date: 20190118
  Transmission Date: 20190417
  Serious: Yes (Hospitalization)
  Sender: FDA-Public Use
  Company Number: US-ASTRAZENECA-2018SE21920

PATIENT
  Age: 24313 Day
  Sex: Female
  Weight: 89.4 kg

DRUGS (1)
  1. BYDUREON BCISE [Suspect]
     Active Substance: EXENATIDE
     Indication: TYPE 2 DIABETES MELLITUS
     Dosage: 2.0MG UNKNOWN
     Route: 058
     Dates: start: 2017

REACTIONS (9)
  - Contusion [Unknown]
  - Wrong technique in product usage process [Not Recovered/Not Resolved]
  - Haemorrhage [Unknown]
  - Underdose [Not Recovered/Not Resolved]
  - Speech disorder [Unknown]
  - Tracheal deviation [Unknown]
  - Injection site extravasation [Not Recovered/Not Resolved]
  - Neoplasm [Recovering/Resolving]
  - Malignant dysphagia [Recovering/Resolving]

NARRATIVE: CASE EVENT DATE: 20180207
